FAERS Safety Report 11375016 (Version 1)
Quarter: 2015Q3

REPORT INFORMATION
  Report Type: Spontaneous
  Country: IN (occurrence: IN)
  Receive Date: 20150813
  Receipt Date: 20150813
  Transmission Date: 20151125
  Serious: Yes (Other)
  Sender: FDA-Public Use
  Company Number: IN-SUN PHARMACEUTICAL INDUSTRIES LTD-2015R1-101253

PATIENT
  Age: 30 Year
  Sex: Female

DRUGS (3)
  1. OXCARBAZEPINE. [Suspect]
     Active Substance: OXCARBAZEPINE
     Indication: EPILEPSY
     Dosage: 300 MG, BID
     Route: 048
  2. CLOBAZAM [Suspect]
     Active Substance: CLOBAZAM
     Indication: EPILEPSY
     Dosage: 10MG AT NIGHT
     Route: 065
  3. ETIZOLAM [Suspect]
     Active Substance: ETIZOLAM
     Indication: EPILEPSY
     Dosage: 0.25 MG, BID
     Route: 065

REACTIONS (2)
  - Libido decreased [Unknown]
  - Sexual dysfunction [Unknown]
